FAERS Safety Report 9372162 (Version 1)
Quarter: 2013Q2

REPORT INFORMATION
  Report Type: Spontaneous
  Country: US (occurrence: None)
  Receive Date: 20130625
  Receipt Date: 20130625
  Transmission Date: 20140414
  Serious: Yes (Other)
  Sender: FDA-Public Use
  Company Number: DEP_00925_2013

PATIENT
  Sex: Female
  Weight: 81.65 kg

DRUGS (8)
  1. GRALISE [Suspect]
     Indication: NEURALGIA
     Dosage: L200 MG, QD,ORAL.
     Dates: start: 201301, end: 020303
  2. PRILOSEC /00661201/(UNKNOWN) [Concomitant]
  3. FLEXERIL/00428402/ [Concomitant]
  4. XANAX (UNKNOWN) [Concomitant]
  5. UTRAM /00599202/ [Concomitant]
  6. CELEXA /00582602/ [Concomitant]
  7. WELLBUTRIN SR [Concomitant]
  8. LEVOXYL [Concomitant]
     Route: 048
     Dates: start: 201301, end: 201303

REACTIONS (2)
  - Reading disorder [None]
  - Intervertebral disc degeneration [None]
